FAERS Safety Report 19551300 (Version 1)
Quarter: 2021Q3

REPORT INFORMATION
  Report Type: Spontaneous
  Country: NZ (occurrence: NZ)
  Receive Date: 20210715
  Receipt Date: 20210715
  Transmission Date: 20211014
  Serious: Yes (Other)
  Sender: FDA-Public Use
  Company Number: NZ-STRIDES ARCOLAB LIMITED-2021SP007496

PATIENT
  Age: 72 Year
  Sex: Male

DRUGS (2)
  1. ITRACONAZOLE. [Suspect]
     Active Substance: ITRACONAZOLE
     Indication: EVIDENCE BASED TREATMENT
  2. ITRACONAZOLE. [Suspect]
     Active Substance: ITRACONAZOLE
     Indication: SEBORRHOEIC DERMATITIS
     Dosage: UNK
     Route: 065

REACTIONS (4)
  - Hepatic function abnormal [Unknown]
  - Off label use [Unknown]
  - Unmasking of previously unidentified disease [Unknown]
  - Hepatocellular carcinoma [Unknown]
